FAERS Safety Report 9893567 (Version 2)
Quarter: 2014Q2

REPORT INFORMATION
  Report Type: Report from Study
  Country: NO (occurrence: NO)
  Receive Date: 20140213
  Receipt Date: 20140513
  Transmission Date: 20141212
  Serious: Yes (Congenital Anomaly)
  Sender: FDA-Public Use
  Company Number: NO-UCBSA-112414

PATIENT
  Sex: Female

DRUGS (1)
  1. LEVETIRACETAM [Suspect]
     Indication: EPILEPSY
     Route: 064

REACTIONS (2)
  - Cleft palate [Unknown]
  - Foetal exposure during pregnancy [Recovered/Resolved]
